FAERS Safety Report 9978434 (Version 1)
Quarter: 2014Q1

REPORT INFORMATION
  Report Type: Report from Study
  Country: US (occurrence: US)
  Receive Date: 20140306
  Receipt Date: 20140306
  Transmission Date: 20141002
  Serious: No
  Sender: FDA-Public Use
  Company Number: US-ABBVIE-13P-163-1171372-00

PATIENT
  Age: 20 Year
  Sex: Female

DRUGS (4)
  1. HUMIRA [Suspect]
     Indication: CROHN^S DISEASE
     Dosage: LOADING DOSE
     Dates: start: 20131014, end: 20131014
  2. HUMIRA [Suspect]
     Dosage: LOADING DOSE
     Dates: start: 20131028, end: 20131028
  3. HUMIRA [Suspect]
     Dates: start: 20131112
  4. CLARITINE [Concomitant]
     Indication: HYPERSENSITIVITY

REACTIONS (11)
  - Sinus disorder [Recovering/Resolving]
  - Oropharyngeal pain [Recovering/Resolving]
  - Ear pain [Not Recovered/Not Resolved]
  - Facial pain [Not Recovered/Not Resolved]
  - Neck pain [Not Recovered/Not Resolved]
  - Pharyngitis streptococcal [Recovering/Resolving]
  - Nasal congestion [Recovering/Resolving]
  - Hypersensitivity [Recovering/Resolving]
  - Ear infection [Not Recovered/Not Resolved]
  - Sinus headache [Not Recovered/Not Resolved]
  - Headache [Not Recovered/Not Resolved]
